FAERS Safety Report 21542071 (Version 1)
Quarter: 2022Q4

REPORT INFORMATION
  Report Type: Spontaneous
  Country: CN (occurrence: CN)
  Receive Date: 20221102
  Receipt Date: 20221102
  Transmission Date: 20230113
  Serious: Yes (Hospitalization, Other)
  Sender: FDA-Public Use
  Company Number: CN-PFIZER INC-PV202200092809

PATIENT
  Age: 62 Year
  Sex: Male
  Weight: 63 kg

DRUGS (2)
  1. EPIRUBICIN [Suspect]
     Active Substance: EPIRUBICIN
     Indication: Ureteric cancer
     Dosage: 50 MG, 1X/DAY
     Route: 066
     Dates: start: 20221020, end: 20221020
  2. GEMZAR [Suspect]
     Active Substance: GEMCITABINE HYDROCHLORIDE
     Indication: Ureteric cancer
     Dosage: 1400 MG, 1X/DAY
     Route: 041
     Dates: start: 20221020, end: 20221020

REACTIONS (3)
  - Myelosuppression [Recovering/Resolving]
  - Type 2 diabetes mellitus [Unknown]
  - Arteriosclerosis coronary artery [Unknown]

NARRATIVE: CASE EVENT DATE: 20221025
